FAERS Safety Report 5367891-1 (Version None)
Quarter: 2007Q2

REPORT INFORMATION
  Report Type: 
  Country: None (occurrence: None)
  Receive Date: 20070622
  Receipt Date: 20070611
  Transmission Date: 20071010
  Serious: Yes (Hospitalization)
  Sender: FDA-Public Use
  Company Number: US-ROXANE LABORATORIES, INC-2007-DE-03406GD

PATIENT
  Age: 23 Year
  Sex: Female

DRUGS (7)
  1. TRAZODONE HCL [Suspect]
     Indication: BIPOLAR I DISORDER
  2. MIRTAZAPINE [Suspect]
     Indication: BIPOLAR I DISORDER
  3. LAMOTRIGINE [Suspect]
     Indication: BIPOLAR I DISORDER
  4. VENLAFAXINE HCL [Suspect]
     Indication: BIPOLAR I DISORDER
  5. GABAPENTIN [Suspect]
     Indication: BIPOLAR I DISORDER
  6. ESCITALOPRAM OXALATE [Suspect]
     Indication: BIPOLAR I DISORDER
  7. METHYLPHENIDATE HCL [Suspect]
     Indication: BIPOLAR I DISORDER

REACTIONS (1)
  - SEROTONIN SYNDROME [None]
